FAERS Safety Report 13460800 (Version 1)
Quarter: 2017Q2

REPORT INFORMATION
  Report Type: Spontaneous
  Country: US (occurrence: US)
  Receive Date: 20170420
  Receipt Date: 20170420
  Transmission Date: 20170830
  Serious: No
  Sender: FDA-Public Use
  Company Number: US-TEVA-706139USA

PATIENT
  Age: 87 Year
  Sex: Female
  Weight: 57.66 kg

DRUGS (7)
  1. PRAVASTATIN. [Suspect]
     Active Substance: PRAVASTATIN
     Indication: CARDIOVASCULAR DISORDER
  2. LOSARTAN. [Concomitant]
     Active Substance: LOSARTAN
  3. CENTRUM [Concomitant]
     Active Substance: VITAMINS
  4. PRAVASTATIN. [Suspect]
     Active Substance: PRAVASTATIN
     Indication: PAIN IN EXTREMITY
     Route: 065
     Dates: start: 20160910
  5. ASPIRIN. [Concomitant]
     Active Substance: ASPIRIN
     Route: 065
  6. HCTZ [Concomitant]
     Active Substance: HYDROCHLOROTHIAZIDE
  7. LEVOTHYROXINE. [Concomitant]
     Active Substance: LEVOTHYROXINE

REACTIONS (2)
  - Insomnia [Recovered/Resolved]
  - Product use in unapproved indication [Unknown]

NARRATIVE: CASE EVENT DATE: 20160910
